FAERS Safety Report 6248773-X (Version None)
Quarter: 2009Q2

REPORT INFORMATION
  Report Type: 
  Country: None (occurrence: None)
  Receive Date: 20090624
  Receipt Date: 20090428
  Transmission Date: 20091009
  Serious: Yes (Other)
  Sender: FDA-Public Use
  Company Number: ADE# 09-064

PATIENT
  Sex: Female
  Weight: 58.9676 kg

DRUGS (2)
  1. ONDANSETRON HCL [Suspect]
     Indication: NAUSEA
     Dosage: ONLY TOOK 2 TABLETS
     Dates: start: 20090423, end: 20090424
  2. NOVALOX [Concomitant]

REACTIONS (1)
  - RASH GENERALISED [None]
